FAERS Safety Report 8793027 (Version 2)
Quarter: 2013Q4

REPORT INFORMATION
  Report Type: Spontaneous
  Country: US (occurrence: US)
  Receive Date: 20120918
  Receipt Date: 20131031
  Transmission Date: 20140711
  Serious: Yes (Other)
  Sender: FDA-Public Use
  Company Number: US-009507513-1209USA003444

PATIENT
  Sex: Male

DRUGS (4)
  1. ISENTRESS [Suspect]
     Route: 048
  2. REYATAZ [Suspect]
     Dosage: 400 MG, UNK
  3. REYATAZ [Suspect]
     Dosage: 300 MG, UNK
  4. NORVIR [Suspect]

REACTIONS (7)
  - Glaucoma [Unknown]
  - Pruritus [Unknown]
  - Liver function test abnormal [Unknown]
  - Pollakiuria [Unknown]
  - Ocular icterus [Unknown]
  - Sleep disorder [Unknown]
  - Gastritis [Unknown]
